FAERS Safety Report 11451491 (Version 3)
Quarter: 2015Q4

REPORT INFORMATION
  Report Type: Spontaneous
  Country: US (occurrence: US)
  Receive Date: 20150903
  Receipt Date: 20151103
  Transmission Date: 20160304
  Serious: No
  Sender: FDA-Public Use
  Company Number: PHEH2015US003344

PATIENT
  Age: 51 Year
  Sex: Female

DRUGS (1)
  1. VIVELLE-DOT [Suspect]
     Active Substance: ESTRADIOL
     Indication: PRODUCT USED FOR UNKNOWN INDICATION
     Dosage: 0.1 OT, UNK
     Route: 062

REACTIONS (5)
  - Eye injury [Unknown]
  - Ear discomfort [Unknown]
  - Visual impairment [Unknown]
  - Swelling face [Unknown]
  - Sinus disorder [Unknown]
